FAERS Safety Report 7213623-1 (Version None)
Quarter: 2011Q1

REPORT INFORMATION
  Report Type: 
  Country: None (occurrence: None)
  Receive Date: 20110106
  Receipt Date: 20101230
  Transmission Date: 20110831
  Serious: Yes (Death, Hospitalization, Other)
  Sender: FDA-Public Use
  Company Number: US-AMGEN-KDL442967

PATIENT

DRUGS (17)
  1. PROCRIT [Suspect]
     Indication: ANAEMIA
     Dosage: UNK UNK, Q2WK
     Route: 058
  2. ATORVASTATIN CALCIUM [Concomitant]
  3. LANTUS [Concomitant]
     Dosage: 10 IU, UNK
  4. NEXIUM [Concomitant]
     Dosage: 40 MG, UNK
  5. INSULIN [Concomitant]
     Dosage: UNK UNK, UNK
     Route: 058
  6. LASIX [Concomitant]
     Dosage: 40 MG, BID
  7. SYNTHROID [Concomitant]
     Dosage: 100 A?G, UNK
  8. DIURETICS [Concomitant]
  9. ASPIRIN [Concomitant]
     Dosage: 81 MG, UNK
  10. OS-CAL 500 + D [Concomitant]
     Dosage: UNK UNK, TID
     Route: 048
  11. OXYGEN [Concomitant]
     Dosage: 6 L, CONTINUING
  12. NEURONTIN [Concomitant]
     Dosage: 200 MG, UNK
  13. K-DUR [Concomitant]
     Dosage: 40 MEQ, UNK
  14. WARFARIN [Concomitant]
  15. CARDIAC MEDICATION NOS [Concomitant]
  16. NORVASC [Concomitant]
     Dosage: 10 MG, UNK
  17. LACTULOSE [Concomitant]
     Dosage: 30 ML, UNK

REACTIONS (14)
  - ATRIAL FIBRILLATION [None]
  - RENAL FAILURE ACUTE [None]
  - RENAL OSTEODYSTROPHY [None]
  - DIABETIC NEUROPATHY [None]
  - HYPERAMMONAEMIA [None]
  - RESPIRATORY FAILURE [None]
  - DEATH [None]
  - ENCEPHALOPATHY [None]
  - PICKWICKIAN SYNDROME [None]
  - HOSPITALISATION [None]
  - CARDIAC FAILURE CONGESTIVE [None]
  - RENAL FAILURE CHRONIC [None]
  - SLEEP APNOEA SYNDROME [None]
  - TYPE 2 DIABETES MELLITUS [None]
